FAERS Safety Report 20491649 (Version 1)
Quarter: 2022Q1

REPORT INFORMATION
  Report Type: Spontaneous
  Country: US (occurrence: US)
  Receive Date: 20220218
  Receipt Date: 20220218
  Transmission Date: 20220423
  Serious: No
  Sender: FDA-Public Use
  Company Number: US-LEADIANT BIOSCIENCES INC-2021STPI000083

PATIENT
  Age: 42 Year

DRUGS (1)
  1. CARNITOR [Suspect]
     Active Substance: LEVOCARNITINE
     Indication: Toxicity to various agents
     Dosage: 6000 MILLIGRAM
     Route: 048

REACTIONS (1)
  - Drug ineffective [Recovered/Resolved]
